FAERS Safety Report 5469454-6 (Version None)
Quarter: 2007Q3

REPORT INFORMATION
  Report Type: 
  Country: None (occurrence: None)
  Receive Date: 20070925
  Receipt Date: 20070925
  Transmission Date: 20080115
  Serious: Yes (Hospitalization)
  Sender: FDA-Public Use
  Company Number: None

PATIENT
  Sex: Female
  Weight: 95.1 kg

DRUGS (3)
  1. BEVACIZUMAB (RHUMAB VEGF) [Suspect]
     Dosage: 490 MG
  2. CAMPTOSAR [Suspect]
     Dosage: 321 MG
  3. ELOXATIN [Suspect]
     Dosage: 181 MG

REACTIONS (3)
  - CYANOSIS [None]
  - HYPERHIDROSIS [None]
  - PULMONARY EMBOLISM [None]
